FAERS Safety Report 9760685 (Version 2)
Quarter: 2014Q1

REPORT INFORMATION
  Report Type: Spontaneous
  Country: US (occurrence: US)
  Receive Date: 20131216
  Receipt Date: 20140114
  Transmission Date: 20141002
  Serious: No
  Sender: FDA-Public Use
  Company Number: US-BIOGENIDEC-2013BI100272

PATIENT
  Age: 58 Year
  Sex: Female
  Weight: 63 kg

DRUGS (13)
  1. TECFIDERA [Suspect]
     Indication: PRODUCT USED FOR UNKNOWN INDICATION
     Dates: start: 2013
  2. AMPYRA [Concomitant]
     Indication: MULTIPLE SCLEROSIS
  3. AMLODIPINE [Concomitant]
  4. ENABLEX [Concomitant]
  5. CITALOPRAM [Concomitant]
  6. WELLBUTRIN [Concomitant]
  7. NEXIUM [Concomitant]
  8. OMEGA 3-6-9 [Concomitant]
  9. ARICEPT [Concomitant]
  10. VITAMIN C [Concomitant]
  11. FISH OIL [Concomitant]
  12. VITAMIN D3 [Concomitant]
  13. B 12 [Concomitant]

REACTIONS (3)
  - Salivary hypersecretion [Recovered/Resolved]
  - Upper respiratory tract congestion [Unknown]
  - Nausea [Recovered/Resolved]
